FAERS Safety Report 6555120-2 (Version None)
Quarter: 2010Q1

REPORT INFORMATION
  Report Type: 
  Country: None (occurrence: None)
  Receive Date: 20100126
  Receipt Date: 20100126
  Transmission Date: 20100710
  Serious: Yes (Life-Threatening, Hospitalization)
  Sender: FDA-Public Use
  Company Number: None

PATIENT
  Age: 71 Year
  Sex: Female
  Weight: 63.5036 kg

DRUGS (1)
  1. SYNTHROID [Suspect]
     Dosage: 125 MG TO 137MG 1 DAY
     Dates: start: 20080125, end: 20080401

REACTIONS (4)
  - EXTRASYSTOLES [None]
  - HEART RATE IRREGULAR [None]
  - MALAISE [None]
  - PRODUCT SUBSTITUTION ISSUE [None]
